FAERS Safety Report 24571845 (Version 1)
Quarter: 2024Q4

REPORT INFORMATION
  Report Type: Spontaneous
  Country: US (occurrence: US)
  Receive Date: 20241101
  Receipt Date: 20241101
  Transmission Date: 20250114
  Serious: No
  Sender: BRISTOL MYERS SQUIBB
  Company Number: US-BRISTOL-MYERS SQUIBB COMPANY-2024-169939

PATIENT
  Age: 69 Year
  Sex: Female
  Weight: 129.27 kg

DRUGS (1)
  1. ELIQUIS [Suspect]
     Active Substance: APIXABAN
     Indication: Thrombosis
     Route: 048
     Dates: start: 202406

REACTIONS (2)
  - Product physical issue [Unknown]
  - Memory impairment [Unknown]

NARRATIVE: CASE EVENT DATE: 20241027
